FAERS Safety Report 4381692-2 (Version None)
Quarter: 2004Q2

REPORT INFORMATION
  Report Type: 
  Country: None (occurrence: None)
  Receive Date: 20040615
  Receipt Date: 20040601
  Transmission Date: 20050107
  Serious: Yes (Hospitalization)
  Sender: FDA-Public Use
  Company Number: 2004215033JP

PATIENT
  Age: 73 Year
  Sex: Female

DRUGS (6)
  1. CABASER (CABERGOLINE)TABLET, 1-4MG [Suspect]
     Indication: PARKINSON'S DISEASE
     Dosage: 4 MG/DAY, ORAL
     Route: 048
     Dates: end: 20040515
  2. HUSTAZOL (CLOPERASTINE HYDROCHLORIDE) [Concomitant]
  3. MUCODYNE [Concomitant]
  4. MUCOSOLVAN [Concomitant]
  5. TSUMURA DAISAIKOTOU [Concomitant]
  6. APLACE (TROXIPIDE) [Concomitant]

REACTIONS (5)
  - BLOOD PRESSURE DECREASED [None]
  - DEPRESSED LEVEL OF CONSCIOUSNESS [None]
  - HYPONATRAEMIA [None]
  - HYPOVENTILATION [None]
  - OXYGEN SATURATION DECREASED [None]
